FAERS Safety Report 4920466-8 (Version None)
Quarter: 2006Q1

REPORT INFORMATION
  Report Type: 
  Country: None (occurrence: None)
  Receive Date: 20060223
  Receipt Date: 20051013
  Transmission Date: 20060701
  Serious: Yes (Hospitalization)
  Sender: FDA-Public Use
  Company Number: US-MERCK-0510USA07061

PATIENT
  Age: 69 Year
  Sex: Female
  Weight: 75 kg

DRUGS (5)
  1. VIOXX [Suspect]
     Indication: ARTHRITIS
     Route: 048
     Dates: start: 20030825, end: 20040801
  2. VIOXX [Suspect]
     Route: 048
     Dates: start: 20040801, end: 20040917
  3. VIOXX [Suspect]
     Indication: PAIN
     Route: 048
     Dates: start: 20030825, end: 20040801
  4. VIOXX [Suspect]
     Route: 048
     Dates: start: 20040801, end: 20040917
  5. TOPAMAX [Suspect]
     Route: 065

REACTIONS (21)
  - ANXIETY [None]
  - BLOOD PRESSURE INCREASED [None]
  - CEREBROVASCULAR ACCIDENT [None]
  - CEREBROVASCULAR STENOSIS [None]
  - CHEST PAIN [None]
  - CONSTIPATION [None]
  - DEPRESSION [None]
  - DYSPNOEA [None]
  - FALL [None]
  - HYPERCHOLESTEROLAEMIA [None]
  - HYPERTENSION [None]
  - HYPERTRIGLYCERIDAEMIA [None]
  - INTERVERTEBRAL DISC DEGENERATION [None]
  - LOSS OF CONSCIOUSNESS [None]
  - OVERDOSE [None]
  - POLYDIPSIA [None]
  - POST LAMINECTOMY SYNDROME [None]
  - ROTATOR CUFF SYNDROME [None]
  - SCOLIOSIS [None]
  - SPINAL OSTEOARTHRITIS [None]
  - SYNCOPE [None]
